FAERS Safety Report 13370806 (Version 1)
Quarter: 2017Q1

REPORT INFORMATION
  Report Type: Spontaneous
  Country: US (occurrence: US)
  Receive Date: 20170324
  Receipt Date: 20170324
  Transmission Date: 20170429
  Serious: Yes (Hospitalization, Other)
  Sender: FDA-Public Use
  Company Number: US-BAYER-2017-052679

PATIENT
  Age: 69 Year
  Sex: Male

DRUGS (6)
  1. CIPROFLOXACIN. [Suspect]
     Active Substance: CIPROFLOXACIN
     Dosage: UNK
  2. DIPHENHYDRAMINE. [Interacting]
     Active Substance: DIPHENHYDRAMINE
  3. FLUOXETINE [Interacting]
     Active Substance: FLUOXETINE HYDROCHLORIDE
  4. AMIODARONE [Interacting]
     Active Substance: AMIODARONE
  5. FLUPHENAZINE [Interacting]
     Active Substance: FLUPHENAZINE
  6. ROPINIROLE. [Interacting]
     Active Substance: ROPINIROLE

REACTIONS (4)
  - Clostridium difficile infection [None]
  - Labelled drug-drug interaction medication error [None]
  - Sepsis [None]
  - Torsade de pointes [Recovering/Resolving]
